FAERS Safety Report 11152073 (Version 3)
Quarter: 2020Q3

REPORT INFORMATION
  Report Type: Report from Study
  Country: US (occurrence: US)
  Receive Date: 20150601
  Receipt Date: 20200923
  Transmission Date: 20201102
  Serious: Yes (Other)
  Sender: FDA-Public Use
  Company Number: US-SA-2014SA141274

PATIENT
  Age: 29 Year
  Sex: Female

DRUGS (11)
  1. METFORMIN HYDROCHLORIDE. [Concomitant]
     Active Substance: METFORMIN HYDROCHLORIDE
     Dosage: 500 MG
     Route: 065
  2. BACLOFEN. [Concomitant]
     Active Substance: BACLOFEN
     Dosage: 10 MG
     Route: 065
  3. TOVIAZ [Concomitant]
     Active Substance: FESOTERODINE FUMARATE
     Dosage: 4 MG
     Route: 065
  4. TERIFLUNOMIDE. [Suspect]
     Active Substance: TERIFLUNOMIDE
     Dosage: 14 MG, QD
     Route: 048
     Dates: start: 20140829
  5. AMPYRA [Concomitant]
     Active Substance: DALFAMPRIDINE
     Dosage: UNK
     Route: 065
  6. ADVIL (MEFENAMIC ACID) [Concomitant]
     Active Substance: MEFENAMIC ACID
  7. LEXAPRO [Concomitant]
     Active Substance: ESCITALOPRAM OXALATE
     Dosage: 20 MG
     Route: 065
  8. TYLENOL [Concomitant]
     Active Substance: ACETAMINOPHEN
  9. TERIFLUNOMIDE. [Suspect]
     Active Substance: TERIFLUNOMIDE
     Indication: MULTIPLE SCLEROSIS
     Dosage: 7 MG,QD
     Route: 048
     Dates: start: 20140818, end: 201408
  10. ATIVAN [Concomitant]
     Active Substance: LORAZEPAM
     Dosage: 0.5 MG
     Route: 065
  11. ULORIC [Concomitant]
     Active Substance: FEBUXOSTAT
     Dosage: 40 MG
     Route: 065

REACTIONS (16)
  - Fatigue [Unknown]
  - Asthenia [Unknown]
  - Balance disorder [Unknown]
  - Hypoaesthesia [Not Recovered/Not Resolved]
  - Alopecia [Unknown]
  - Muscular weakness [Unknown]
  - Pain in extremity [Recovering/Resolving]
  - Somnolence [Recovered/Resolved]
  - Visual impairment [Unknown]
  - Pain [Recovering/Resolving]
  - Paraesthesia [Not Recovered/Not Resolved]
  - Multiple sclerosis [Not Recovered/Not Resolved]
  - Fall [Unknown]
  - Fatigue [Recovered/Resolved]
  - Hypersomnia [Not Recovered/Not Resolved]
  - Headache [Unknown]

NARRATIVE: CASE EVENT DATE: 201408
